FAERS Safety Report 13438733 (Version 2)
Quarter: 2017Q2

REPORT INFORMATION
  Report Type: Spontaneous
  Country: US (occurrence: US)
  Receive Date: 20170412
  Receipt Date: 20170427
  Transmission Date: 20170830
  Serious: No
  Sender: FDA-Public Use
  Company Number: US-GILEAD-2017-0267086

PATIENT
  Age: 9 Year
  Sex: Male
  Weight: 28.9 kg

DRUGS (8)
  1. PULMOZYME [Concomitant]
     Active Substance: DORNASE ALFA
     Dosage: 2.5 MG, UNK
     Route: 055
     Dates: start: 20110801
  2. HYPERTONIC SALINE SOLUTION [Concomitant]
     Active Substance: SODIUM CHLORIDE
     Dosage: 4 ML, UNK
     Route: 055
     Dates: start: 20120524
  3. AZITHROMYCIN ANHYDROUS. [Concomitant]
     Active Substance: AZITHROMYCIN ANHYDROUS
     Dosage: 250 MG, UNK
     Route: 048
     Dates: start: 20150401
  4. LEVALBUTEROL                       /01419301/ [Concomitant]
     Dosage: 1.25 MG, UNK
     Route: 055
     Dates: start: 20110505
  5. CAYSTON [Suspect]
     Active Substance: AZTREONAM
     Indication: CYSTIC FIBROSIS
     Dosage: 75 MG, UNK
     Route: 055
     Dates: end: 20170320
  6. MULTIVITAMINUM [Concomitant]
     Dosage: 1 DF, UNK
     Route: 048
     Dates: start: 20120524
  7. ORKAMBI [Concomitant]
     Active Substance: IVACAFTOR\LUMACAFTOR
     Dosage: UNK
     Route: 048
     Dates: start: 20161001
  8. PANCREASE                          /00014701/ [Concomitant]
     Dosage: 3 DF, WITH MEALS
     Route: 048
     Dates: start: 20110315

REACTIONS (2)
  - Rash macular [Recovered/Resolved]
  - Urticaria [Recovered/Resolved]

NARRATIVE: CASE EVENT DATE: 20170317
